FAERS Safety Report 7170370-2 (Version None)
Quarter: 2010Q4

REPORT INFORMATION
  Report Type: 
  Country: None (occurrence: None)
  Receive Date: 20101217
  Receipt Date: 20100910
  Transmission Date: 20110411
  Serious: No
  Sender: FDA-Public Use
  Company Number: A0813388A

PATIENT
  Age: 16 Year
  Sex: Male
  Weight: 63 kg

DRUGS (3)
  1. PROMACTA [Suspect]
     Indication: IDIOPATHIC THROMBOCYTOPENIC PURPURA
     Dosage: 75MG PER DAY
     Route: 048
     Dates: start: 20090422
  2. TAMIFLU [Concomitant]
     Dosage: 70MG PER DAY
     Route: 048
  3. DEXAMETHASONE [Concomitant]
     Indication: IDIOPATHIC THROMBOCYTOPENIC PURPURA
     Dosage: 40MG PER DAY
     Route: 048
     Dates: start: 20091026, end: 20091029

REACTIONS (7)
  - ACOUSTIC STIMULATION TESTS ABNORMAL [None]
  - BLOOD CREATINE INCREASED [None]
  - DRUG INEFFECTIVE [None]
  - H1N1 INFLUENZA [None]
  - PETECHIAE [None]
  - PLATELET COUNT ABNORMAL [None]
  - PLATELET COUNT DECREASED [None]
